FAERS Safety Report 5659579-4 (Version None)
Quarter: 2008Q1

REPORT INFORMATION
  Report Type: 
  Country: None (occurrence: None)
  Receive Date: 20080306
  Receipt Date: 20080228
  Transmission Date: 20080703
  Serious: Yes (Death)
  Sender: FDA-Public Use
  Company Number: A-US2007-18960

PATIENT
  Age: 76 Year
  Sex: Male

DRUGS (2)
  1. TRACLEER [Suspect]
     Indication: PULMONARY HYPERTENSION
     Dosage: 125 MG,BID,ORAL;62.5 MG,BID,ORAL
     Route: 048
     Dates: start: 20070731, end: 20070830
  2. TRACLEER [Suspect]
     Indication: PULMONARY HYPERTENSION
     Dosage: 125 MG,BID,ORAL;62.5 MG,BID,ORAL
     Route: 048
     Dates: start: 20070831, end: 20071213

REACTIONS (1)
  - DEATH [None]
